FAERS Safety Report 10691944 (Version 3)
Quarter: 2016Q3

REPORT INFORMATION
  Report Type: Report from Study
  Country: GB (occurrence: GB)
  Receive Date: 20150105
  Receipt Date: 20160906
  Transmission Date: 20161109
  Serious: Yes (Death, Hospitalization)
  Sender: FDA-Public Use
  Company Number: GB-ABBVIE-15K-167-1328652-00

PATIENT
  Sex: Male
  Weight: 96.2 kg

DRUGS (1)
  1. HUMIRA [Suspect]
     Active Substance: ADALIMUMAB
     Indication: PSORIASIS
     Route: 065
     Dates: start: 20120801, end: 20130604

REACTIONS (6)
  - Peritonitis bacterial [Fatal]
  - Hepatic encephalopathy [Fatal]
  - Hepatorenal syndrome [Fatal]
  - Escherichia sepsis [Fatal]
  - Alcoholic liver disease [Fatal]
  - Zieve syndrome [Fatal]
